FAERS Safety Report 8932924 (Version 1)
Quarter: 2012Q4

REPORT INFORMATION
  Report Type: Report from Study
  Country: AU (occurrence: AU)
  Receive Date: 20121129
  Receipt Date: 20121129
  Transmission Date: 20130627
  Serious: Yes (Other)
  Sender: FDA-Public Use
  Company Number: AU-JNJFOC-20121112401

PATIENT
  Sex: Female

DRUGS (13)
  1. SIMPONI [Suspect]
     Indication: RHEUMATOID ARTHRITIS
     Route: 058
     Dates: start: 20100223
  2. SIMPONI [Suspect]
     Indication: RHEUMATOID ARTHRITIS
     Route: 058
     Dates: start: 20121020
  3. UNKNOWN MEDICATION [Concomitant]
  4. METHOTREXATE [Concomitant]
  5. ARABLOC [Concomitant]
  6. NEXIUM [Concomitant]
  7. AMLODIPINE [Concomitant]
  8. PREDNISOLONE [Concomitant]
  9. SERETIDE [Concomitant]
  10. PRISTIQ [Concomitant]
  11. ENDEP [Concomitant]
  12. FOLIC ACID [Concomitant]
  13. FOSAMAX [Concomitant]

REACTIONS (3)
  - Haemoglobin decreased [Unknown]
  - Mouth ulceration [Unknown]
  - Inappropriate schedule of drug administration [Unknown]
